FAERS Safety Report 24691289 (Version 1)
Quarter: 2024Q4

REPORT INFORMATION
  Report Type: Report from Study
  Country: EG (occurrence: EG)
  Receive Date: 20241203
  Receipt Date: 20241203
  Transmission Date: 20250115
  Serious: Yes (Other)
  Sender: EMD SERONO INC
  Company Number: EG-Merck Healthcare KGaA-2024063154

PATIENT
  Age: 44 Year
  Sex: Female

DRUGS (2)
  1. REBIF [Suspect]
     Active Substance: INTERFERON BETA-1A
     Indication: Multiple sclerosis
     Dates: start: 20100501
  2. REBIF [Suspect]
     Active Substance: INTERFERON BETA-1A

REACTIONS (2)
  - Immunosuppression [Not Recovered/Not Resolved]
  - Off label use [Unknown]

NARRATIVE: CASE EVENT DATE: 20241119
